FAERS Safety Report 7915598-6 (Version None)
Quarter: 2011Q4

REPORT INFORMATION
  Report Type: 
  Country: None (occurrence: None)
  Receive Date: 20111115
  Receipt Date: 20110708
  Transmission Date: 20120403
  Serious: No
  Sender: FDA-Public Use
  Company Number: US-BRISTOL-MYERS SQUIBB COMPANY-15889454

PATIENT
  Age: 69 Year
  Sex: Male

DRUGS (3)
  1. YERVOY [Suspect]
     Dosage: NO INF:2,SECOND INFUSION ON 28JUN2011
     Dates: start: 20110607
  2. HYDRALAZINE HCL [Concomitant]
  3. CLONIDINE [Concomitant]

REACTIONS (1)
  - PIGMENTATION DISORDER [None]
